FAERS Safety Report 9718088 (Version 2)
Quarter: 2013Q4

REPORT INFORMATION
  Report Type: Spontaneous
  Country: US (occurrence: US)
  Receive Date: 20131125
  Receipt Date: 20131125
  Transmission Date: 20140711
  Serious: No
  Sender: FDA-Public Use
  Company Number: US-VIVUS-2013V1000154

PATIENT
  Age: 66 Year
  Sex: Male
  Weight: 108.96 kg

DRUGS (7)
  1. QSYMIA 7.5MG/46MG [Suspect]
     Indication: OVERWEIGHT
     Route: 048
     Dates: start: 20130302, end: 201305
  2. QSYMIA 3.75MG/23MG [Suspect]
     Indication: OVERWEIGHT
     Route: 048
     Dates: start: 20130216, end: 20130301
  3. ALLOPURINOL [Concomitant]
     Indication: NEPHROLITHIASIS
     Route: 048
     Dates: start: 1988
  4. HUMALOG [Concomitant]
     Indication: DIABETES MELLITUS
     Dosage: DAILY DOSE: 10 UNITS,
     Route: 058
     Dates: start: 2003
  5. HUMULIN N [Concomitant]
     Indication: DIABETES MELLITUS
     Dosage: DAILY DOSE: 45 UNITS,
     Route: 058
     Dates: start: 2003
  6. ATORVASTATIN [Concomitant]
     Indication: BLOOD CHOLESTEROL
     Route: 048
     Dates: start: 2003
  7. LISINOPRIL [Concomitant]
     Indication: HYPERTENSION
     Route: 048
     Dates: start: 1998

REACTIONS (3)
  - Somnolence [Recovered/Resolved]
  - Dysuria [Recovered/Resolved]
  - Constipation [Recovered/Resolved]
